FAERS Safety Report 7046313-9 (Version None)
Quarter: 2010Q4

REPORT INFORMATION
  Report Type: 
  Country: None (occurrence: None)
  Receive Date: 20101014
  Receipt Date: 20101006
  Transmission Date: 20110411
  Serious: Yes (Hospitalization)
  Sender: FDA-Public Use
  Company Number: B0679292A

PATIENT
  Age: 74 Year
  Sex: Female

DRUGS (9)
  1. DILATREND [Suspect]
     Indication: PRODUCT USED FOR UNKNOWN INDICATION
     Dosage: 6.25MG TWICE PER DAY
     Route: 048
  2. HUMALOG [Suspect]
     Route: 058
     Dates: end: 20100828
  3. LEVEMIR [Suspect]
     Route: 058
     Dates: end: 20100828
  4. ASPIRIN [Suspect]
     Indication: PRODUCT USED FOR UNKNOWN INDICATION
     Route: 048
  5. ENAPREN [Suspect]
     Indication: PRODUCT USED FOR UNKNOWN INDICATION
     Route: 048
  6. MODURETIC 5-50 [Concomitant]
  7. NITRODERM [Concomitant]
  8. FOSAMAX [Concomitant]
  9. EUTHYROX [Concomitant]

REACTIONS (2)
  - HYPOGLYCAEMIA [None]
  - LOSS OF CONSCIOUSNESS [None]
